FAERS Safety Report 6094281-9 (Version None)
Quarter: 2009Q1

REPORT INFORMATION
  Report Type: 
  Country: None (occurrence: None)
  Receive Date: 20090226
  Receipt Date: 20090220
  Transmission Date: 20090719
  Serious: Yes (Other)
  Sender: FDA-Public Use
  Company Number: GB-ELI_LILLY_AND_COMPANY-GB200902005944

PATIENT
  Age: 69 Year
  Sex: Male

DRUGS (1)
  1. ALIMTA [Suspect]
     Dates: start: 20081201

REACTIONS (1)
  - LOSS OF CONSCIOUSNESS [None]
